FAERS Safety Report 19590825 (Version 1)
Quarter: 2021Q3

REPORT INFORMATION
  Report Type: Spontaneous
  Country: US (occurrence: US)
  Receive Date: 20210721
  Receipt Date: 20210721
  Transmission Date: 20211014
  Serious: Yes (Other)
  Sender: FDA-Public Use
  Company Number: US-SA-2021SA233687

PATIENT
  Age: 73 Year
  Sex: Male

DRUGS (1)
  1. AUBAGIO [Suspect]
     Active Substance: TERIFLUNOMIDE
     Indication: MULTIPLE SCLEROSIS
     Dosage: 14 MG, QD
     Route: 048
     Dates: start: 20180129

REACTIONS (6)
  - Fatigue [Unknown]
  - Neuropathy peripheral [Unknown]
  - Nerve injury [Unknown]
  - Fall [Unknown]
  - Condition aggravated [Unknown]
  - Back disorder [Unknown]

NARRATIVE: CASE EVENT DATE: 202101
